FAERS Safety Report 20619616 (Version 1)
Quarter: 2022Q1

REPORT INFORMATION
  Report Type: Spontaneous
  Country: US (occurrence: None)
  Receive Date: 20220322
  Receipt Date: 20220322
  Transmission Date: 20220423
  Serious: No
  Sender: FDA-Public Use
  Company Number: 2022A109739

PATIENT
  Sex: Female

DRUGS (1)
  1. BUDESONIDE\FORMOTEROL\GLYCOPYRRONIUM [Suspect]
     Active Substance: BUDESONIDE\FORMOTEROL\GLYCOPYRRONIUM
     Indication: Chronic obstructive pulmonary disease
     Route: 055
     Dates: end: 20220305

REACTIONS (13)
  - Blood pressure increased [Unknown]
  - Visual impairment [Unknown]
  - Dysuria [Unknown]
  - Muscular weakness [Unknown]
  - Back pain [Unknown]
  - Chest pain [Unknown]
  - Tremor [Unknown]
  - Blood glucose increased [Unknown]
  - Muscle spasms [Unknown]
  - Cough [Unknown]
  - Secretion discharge [Unknown]
  - Pneumonia [Unknown]
  - Dysphonia [Unknown]
